FAERS Safety Report 9225111 (Version 3)
Quarter: 2014Q3

REPORT INFORMATION
  Report Type: Spontaneous
  Country: FR (occurrence: None)
  Receive Date: 20130409
  Receipt Date: 20140908
  Transmission Date: 20150326
  Serious: Yes (Hospitalization)
  Sender: FDA-Public Use
  Company Number: NGX_01696_2013

PATIENT
  Age: 66 Year
  Sex: Female
  Weight: 55 kg

DRUGS (6)
  1. QUTENZA [Suspect]
     Active Substance: CAPSAICIN
     Indication: SCAR PAIN
     Dosage: (1 DF 1X  [A CUTANEOUS PATCH]
     Route: 062
     Dates: start: 20130321, end: 20130321
  2. PARACETAMOL [Concomitant]
     Active Substance: ACETAMINOPHEN
  3. FENTANYL. [Concomitant]
     Active Substance: FENTANYL
  4. QUTENZA [Suspect]
     Active Substance: CAPSAICIN
     Indication: POST-THORACOTOMY PAIN SYNDROME
     Dosage: (1 DF 1X  [A CUTANEOUS PATCH]
     Route: 062
     Dates: start: 20130321, end: 20130321
  5. OPIOIDS [Suspect]
     Active Substance: UNSPECIFIED INGREDIENT
     Indication: PRODUCT USED FOR UNKNOWN INDICATION
     Dosage: DF [REDUCED DOSAGE]
  6. QUTENZA [Suspect]
     Active Substance: CAPSAICIN
     Indication: NEURALGIA
     Dosage: (1 DF 1X  [A CUTANEOUS PATCH]
     Route: 062
     Dates: start: 20130321, end: 20130321

REACTIONS (6)
  - Tremor [None]
  - Malaise [None]
  - Anxiety [None]
  - Agitation [None]
  - Application site pain [None]
  - Withdrawal syndrome [None]

NARRATIVE: CASE EVENT DATE: 20130321
